FAERS Safety Report 4758416-X (Version None)
Quarter: 2005Q3

REPORT INFORMATION
  Report Type: 
  Country: None (occurrence: None)
  Receive Date: 20050830
  Receipt Date: 20050830
  Transmission Date: 20060218
  Serious: Yes (Death)
  Sender: FDA-Public Use
  Company Number: None

PATIENT
  Age: 35 Year
  Sex: Male
  Weight: 91.173 kg

DRUGS (2)
  1. PAXIL [Suspect]
     Indication: ANXIETY
     Dosage: ONCE A DAY   1   PO
     Route: 048
     Dates: start: 20050503, end: 20050503
  2. CLONAZEPAM [Suspect]
     Dosage: TWICE A DAY    2    PO
     Route: 048

REACTIONS (2)
  - ASPHYXIA [None]
  - COMPLETED SUICIDE [None]
